FAERS Safety Report 6687203-0 (Version None)
Quarter: 2010Q2

REPORT INFORMATION
  Report Type: 
  Country: None (occurrence: None)
  Receive Date: 20100419
  Receipt Date: 20100407
  Transmission Date: 20101027
  Serious: Yes (Hospitalization)
  Sender: FDA-Public Use
  Company Number: JP-PFIZER INC-2010035370

PATIENT
  Age: 82 Year
  Sex: Male

DRUGS (12)
  1. SUNITINIB MALATE [Suspect]
     Indication: HEPATIC NEOPLASM MALIGNANT
     Dosage: 37.5 MG, 1X/DAY
     Route: 048
     Dates: start: 20091029
  2. URSO 250 [Concomitant]
     Route: 048
     Dates: end: 20100316
  3. ASPIRIN [Concomitant]
     Indication: PROPHYLAXIS
     Route: 048
     Dates: start: 20100108, end: 20100316
  4. FAMOTIDINE [Concomitant]
     Indication: REFLUX OESOPHAGITIS
     Route: 048
     Dates: start: 20091013, end: 20100316
  5. FLUITRAN [Concomitant]
     Indication: PLEURAL EFFUSION
     Route: 048
     Dates: start: 20100211
  6. AMLODIPINE BESILATE [Concomitant]
     Indication: HYPERTENSION
     Route: 048
     Dates: start: 20100218
  7. PASTARON [Concomitant]
     Indication: PALMAR-PLANTAR ERYTHRODYSAESTHESIA SYNDROME
     Route: 062
     Dates: start: 20091112
  8. HIRUDOID [Concomitant]
     Indication: PALMAR-PLANTAR ERYTHRODYSAESTHESIA SYNDROME
     Route: 062
     Dates: start: 20091112
  9. AMITRIPTYLINE HCL [Concomitant]
     Indication: POLLAKIURIA
     Route: 048
     Dates: start: 20091216
  10. APHTASOLON [Concomitant]
     Indication: GINGIVAL PAIN
     Route: 048
     Dates: start: 20091118
  11. MAGNESIUM OXIDE [Concomitant]
     Indication: CONSTIPATION
     Route: 048
  12. PURSENNID [Concomitant]
     Indication: CONSTIPATION
     Route: 048

REACTIONS (4)
  - DELIRIUM [None]
  - HAEMATEMESIS [None]
  - INFLAMMATION [None]
  - OESOPHAGEAL ULCER [None]
